FAERS Safety Report 16059224 (Version 1)
Quarter: 2019Q1

REPORT INFORMATION
  Report Type: Spontaneous
  Country: DE (occurrence: DE)
  Receive Date: 20190311
  Receipt Date: 20190311
  Transmission Date: 20190418
  Serious: Yes (Other)
  Sender: FDA-Public Use
  Company Number: DE-MYLANLABS-2019M1021422

PATIENT
  Age: 51 Year
  Sex: Male

DRUGS (6)
  1. CYCLOSPORINE. [Suspect]
     Active Substance: CYCLOSPORINE
     Indication: IMMUNOSUPPRESSANT DRUG THERAPY
     Dosage: UNKNOWN
  2. PREDNISOLONE. [Suspect]
     Active Substance: PREDNISOLONE
     Indication: IMMUNOSUPPRESSANT DRUG THERAPY
     Dosage: PREDNISOLONE WAS TAPERED(2 MG/KGBW )
  3. PREDNISOLONE. [Suspect]
     Active Substance: PREDNISOLONE
     Dosage: 2 MG/KGBW
  4. SIROLIMUS. [Suspect]
     Active Substance: SIROLIMUS
     Indication: IMMUNOSUPPRESSANT DRUG THERAPY
     Dosage: UNKNOWN
  5. METHOTREXATE. [Suspect]
     Active Substance: METHOTREXATE
     Dosage: LONG COURSE METHOTREXATE WITHOUT ATG
  6. MYCOPHENOLATE MOFETIL. [Suspect]
     Active Substance: MYCOPHENOLATE MOFETIL
     Indication: IMMUNOSUPPRESSANT DRUG THERAPY
     Dosage: UNKNOWN

REACTIONS (5)
  - Neutropenic sepsis [Recovered/Resolved]
  - Epstein-Barr virus infection [Recovered/Resolved]
  - Pancytopenia [Recovered/Resolved]
  - Graft versus host disease in skin [Recovering/Resolving]
  - Septic shock [Recovered/Resolved]
